FAERS Safety Report 9333359 (Version 1)
Quarter: 2013Q2

REPORT INFORMATION
  Report Type: Spontaneous
  Country: IT (occurrence: IT)
  Receive Date: 20130606
  Receipt Date: 20130606
  Transmission Date: 20140414
  Serious: Yes (Death)
  Sender: FDA-Public Use
  Company Number: IT-BAYER-2013-067216

PATIENT
  Age: 91 Year
  Sex: Male

DRUGS (3)
  1. CIPROFLOXACIN [Suspect]
     Indication: NOCARDIOSIS
     Dosage: 200 MG, BID
  2. TRIMETOPRIM + SULFAMETOXAZOL [Concomitant]
     Indication: BACTERAEMIA
     Dosage: 160/800 MG, THREE TIMES DAILY
     Route: 042
  3. LINEZOLID [Concomitant]
     Indication: BACTERAEMIA
     Dosage: 600 MG, BID

REACTIONS (3)
  - Treatment failure [Fatal]
  - Bacteraemia [Fatal]
  - Off label use [None]
